FAERS Safety Report 4894722-6 (Version None)
Quarter: 2006Q1

REPORT INFORMATION
  Report Type: 
  Country: None (occurrence: None)
  Receive Date: 20060127
  Receipt Date: 20060127
  Transmission Date: 20060701
  Serious: Yes (Disabling)
  Sender: FDA-Public Use
  Company Number: None

PATIENT
  Age: 41 Year
  Sex: Male
  Weight: 101.6057 kg

DRUGS (4)
  1. CLOZAPINE [Suspect]
     Indication: SCHIZOPHRENIA
     Dosage: 600 MG QD PO
     Route: 048
     Dates: start: 19911111, end: 20060113
  2. SIMVISTATIN [Concomitant]
  3. ZIPRASIDON [Concomitant]
  4. HYDROXYZINE PAMOATE [Concomitant]

REACTIONS (10)
  - AGITATION [None]
  - DYSARTHRIA [None]
  - FALL [None]
  - HEAD INJURY [None]
  - LACERATION [None]
  - MUSCULOSKELETAL STIFFNESS [None]
  - NEUROLEPTIC MALIGNANT SYNDROME [None]
  - OVERDOSE [None]
  - PSYCHOTIC DISORDER [None]
  - SLEEP DISORDER [None]
